FAERS Safety Report 8803545 (Version 1)
Quarter: 2012Q4

REPORT INFORMATION
  Report Type: 
  Country: US (occurrence: US)
  Receive Date: 20120924
  Receipt Date: 20120924
  Transmission Date: 20130627
  Serious: No
  Sender: FDA-Public Use
  Company Number: US-VERTEX PHARMACEUTICAL INC.-2012-021329

PATIENT
  Age: 61 Year
  Sex: Male
  Weight: 81.18 kg

DRUGS (3)
  1. INCIVEK [Suspect]
     Indication: HEPATITIS C
     Dosage: 750 mg, tid
     Route: 048
     Dates: start: 20120908
  2. RIBAVIRIN [Suspect]
     Indication: HEPATITIS C
     Dosage: 600 mg in am, 400 mg in pm
     Route: 048
     Dates: start: 20120908
  3. PEGASYS [Suspect]
     Indication: HEPATITIS C
     Dosage: 180 ?g, UNK
     Route: 058
     Dates: start: 20120908

REACTIONS (7)
  - Influenza like illness [Recovered/Resolved]
  - Muscle spasms [Recovered/Resolved]
  - Night sweats [Not Recovered/Not Resolved]
  - Decreased appetite [Not Recovered/Not Resolved]
  - Fatigue [Recovered/Resolved]
  - Rash [Not Recovered/Not Resolved]
  - Diarrhoea [Recovered/Resolved]
